FAERS Safety Report 6529059-2 (Version None)
Quarter: 2010Q1

REPORT INFORMATION
  Report Type: 
  Country: None (occurrence: None)
  Receive Date: 20100106
  Receipt Date: 20091229
  Transmission Date: 20100710
  Serious: No
  Sender: FDA-Public Use
  Company Number: BR-PFIZER INC-2009213344

PATIENT
  Age: 39 Year
  Sex: Female

DRUGS (1)
  1. SOLU-MEDROL [Suspect]
     Indication: MULTIPLE SCLEROSIS
     Dosage: 1 G, 1X/DAY
     Dates: start: 20040101

REACTIONS (2)
  - ANXIETY [None]
  - FEAR [None]
